FAERS Safety Report 10370933 (Version 2)
Quarter: 2014Q3

REPORT INFORMATION
  Report Type: Spontaneous
  Country: US (occurrence: US)
  Receive Date: 20140808
  Receipt Date: 20140808
  Transmission Date: 20150326
  Serious: Yes (Hospitalization, Disabling, Other)
  Sender: FDA-Public Use
  Company Number: US-009507513-2011SP025679

PATIENT
  Sex: Female
  Weight: 61.24 kg

DRUGS (1)
  1. NUVARING [Suspect]
     Active Substance: ETHINYL ESTRADIOL\ETONOGESTREL
     Indication: CONTRACEPTION
     Route: 067
     Dates: start: 20080926, end: 20090605

REACTIONS (9)
  - Ovarian cyst [Unknown]
  - Insomnia [Unknown]
  - Pulmonary haematoma [Unknown]
  - Pharyngitis streptococcal [Unknown]
  - Lung disorder [Unknown]
  - Chest pain [Recovered/Resolved]
  - Pulmonary mass [Unknown]
  - Anxiety [Unknown]
  - Pulmonary embolism [Recovering/Resolving]

NARRATIVE: CASE EVENT DATE: 200905
